FAERS Safety Report 23051983 (Version 2)
Quarter: 2023Q4

REPORT INFORMATION
  Report Type: Spontaneous
  Country: FR (occurrence: FR)
  Receive Date: 20231010
  Receipt Date: 20231129
  Transmission Date: 20240109
  Serious: Yes (Life-Threatening, Hospitalization, Other)
  Sender: FDA-Public Use
  Company Number: FR-ELI_LILLY_AND_COMPANY-FR202310002176

PATIENT
  Age: 71 Year
  Sex: Female
  Weight: 48 kg

DRUGS (5)
  1. ABEMACICLIB [Suspect]
     Active Substance: ABEMACICLIB
     Indication: Breast cancer metastatic
     Dosage: 150 MG, BID
     Route: 048
     Dates: start: 20230427
  2. ABEMACICLIB [Suspect]
     Active Substance: ABEMACICLIB
     Indication: Metastases to bone
     Dosage: 100 MG, BID
     Route: 048
     Dates: start: 20230720, end: 20230915
  3. FUROSEMIDE [Suspect]
     Active Substance: FUROSEMIDE
     Indication: Product used for unknown indication
     Dosage: UNK UNK, UNKNOWN
     Route: 065
  4. LETROZOLE [Concomitant]
     Active Substance: LETROZOLE
     Indication: Breast cancer metastatic
     Dosage: 2.5 MG, DAILY
     Dates: start: 20230316
  5. XGEVA [Concomitant]
     Active Substance: DENOSUMAB
     Indication: Product used for unknown indication
     Dosage: 120 MG
     Route: 058
     Dates: start: 20230504

REACTIONS (19)
  - Hepatic cytolysis [Unknown]
  - COVID-19 [Unknown]
  - Interstitial lung disease [Unknown]
  - Radiation oesophagitis [Unknown]
  - Pneumocystis jirovecii pneumonia [Unknown]
  - Blood albumin decreased [Recovering/Resolving]
  - Spinal cord infection [Unknown]
  - Weight decreased [Recovering/Resolving]
  - Metabolic alkalosis [Unknown]
  - C-reactive protein increased [Unknown]
  - Pleural effusion [Unknown]
  - Fibrosis [Unknown]
  - Nutritional condition abnormal [Unknown]
  - Cholestasis [Recovering/Resolving]
  - Cell death [Unknown]
  - Back pain [Unknown]
  - COVID-19 pneumonia [Unknown]
  - Anaemia [Unknown]
  - Dizziness [Unknown]

NARRATIVE: CASE EVENT DATE: 20230601
